FAERS Safety Report 8572541-7 (Version None)
Quarter: 2012Q3

REPORT INFORMATION
  Report Type: 
  Country: None (occurrence: None)
  Receive Date: 20120806
  Receipt Date: 20120727
  Transmission Date: 20120928
  Serious: Yes (Death)
  Sender: FDA-Public Use
  Company Number: GB-TEVA-344568ISR

PATIENT
  Age: 40 Year
  Sex: Male
  Weight: 104 kg

DRUGS (12)
  1. METHADONE HCL [Interacting]
     Indication: PAIN
     Dosage: INDICATION: PAIN CONTROL
     Route: 048
     Dates: start: 20111025, end: 20111026
  2. METHADONE HCL [Interacting]
     Dosage: INDICATION: PAIN CONTROL
     Route: 048
     Dates: start: 20111027, end: 20111027
  3. ORAMORPH SR [Concomitant]
     Indication: CROHN'S DISEASE
  4. LANSOPRAZOLE [Concomitant]
     Indication: GASTRITIS
     Route: 048
     Dates: start: 20111019
  5. ORAMORPH SR [Concomitant]
     Indication: PAIN
     Route: 048
     Dates: start: 20110707, end: 20111025
  6. ADCAL-D3 [Concomitant]
     Indication: CROHN'S DISEASE
     Dosage: CONTINUED
     Route: 048
     Dates: start: 20110808
  7. MULTI-VITAMIN [Concomitant]
  8. HUMIRA [Concomitant]
     Indication: CROHN'S DISEASE
     Dosage: CONTINUED
     Route: 030
     Dates: start: 20111005
  9. DIAZEPAM [Concomitant]
     Indication: ANXIETY
     Route: 048
     Dates: start: 20111019
  10. VENTOLIN [Concomitant]
  11. CLARITHROMYCIN [Suspect]
     Indication: LOWER RESPIRATORY TRACT INFECTION
     Dosage: 1000 MILLIGRAM DAILY;
     Route: 048
     Dates: start: 20111028
  12. METHADONE HCL [Interacting]
     Dosage: INDICATION: PAIN CONTROL
     Route: 048
     Dates: start: 20111028, end: 20111030

REACTIONS (21)
  - MALAISE [None]
  - OROPHARYNGEAL PAIN [None]
  - PHARYNGEAL ERYTHEMA [None]
  - TREMOR [None]
  - TOXICITY TO VARIOUS AGENTS [None]
  - C-REACTIVE PROTEIN INCREASED [None]
  - RECTAL HAEMORRHAGE [None]
  - HEADACHE [None]
  - HICCUPS [None]
  - HYPERHIDROSIS [None]
  - VOMITING [None]
  - DYSURIA [None]
  - BLOOD URINE [None]
  - ERYTHEMA [None]
  - DIFFUSE ALVEOLAR DAMAGE [None]
  - WHITE BLOOD CELL COUNT INCREASED [None]
  - SOMNOLENCE [None]
  - HEART RATE INCREASED [None]
  - INHIBITORY DRUG INTERACTION [None]
  - DYSARTHRIA [None]
  - CROHN'S DISEASE [None]
